FAERS Safety Report 10200931 (Version 3)
Quarter: 2014Q3

REPORT INFORMATION
  Report Type: Spontaneous
  Country: JP (occurrence: JP)
  Receive Date: 20140528
  Receipt Date: 20140702
  Transmission Date: 20150326
  Serious: Yes (Other)
  Sender: FDA-Public Use
  Company Number: JP-JNJFOC-20140513592

PATIENT
  Sex: Male
  Weight: 75 kg

DRUGS (16)
  1. AKINETON [Concomitant]
     Active Substance: BIPERIDEN HYDROCHLORIDE
     Route: 048
     Dates: start: 20130309
  2. DIOVAN [Concomitant]
     Active Substance: VALSARTAN
     Route: 048
     Dates: start: 20130309
  3. HIRNAMIN (LEVOPROMAZINE MALEATE) [Concomitant]
     Route: 048
     Dates: start: 20130309
  4. RISPERDAL CONSTA [Suspect]
     Active Substance: RISPERIDONE
     Indication: SCHIZOPHRENIA
     Route: 030
     Dates: start: 20110408, end: 20110408
  5. INVEGA [Suspect]
     Active Substance: PALIPERIDONE
     Indication: SCHIZOPHRENIA
     Route: 048
     Dates: start: 20130309
  6. CONTOMIN [Concomitant]
     Active Substance: CHLORPROMAZINE
     Route: 048
     Dates: start: 20130309, end: 20140110
  7. LONASEN [Concomitant]
     Active Substance: BLONANSERIN
     Route: 048
     Dates: start: 20140111
  8. BENZALIN [Concomitant]
     Active Substance: NITRAZEPAM
     Route: 048
     Dates: start: 20130309
  9. BAKUMONDOUTO [Concomitant]
     Active Substance: HERBALS
     Route: 048
     Dates: start: 20130309
  10. RISPERDAL CONSTA [Suspect]
     Active Substance: RISPERIDONE
     Indication: SCHIZOPHRENIA
     Route: 030
     Dates: start: 20110603
  11. SERENASE [Concomitant]
     Active Substance: HALOPERIDOL
     Route: 048
     Dates: start: 20130309
  12. MUCODYNE [Concomitant]
     Active Substance: CARBOCYSTEINE
     Route: 048
     Dates: start: 20130309
  13. ABILIFY [Concomitant]
     Active Substance: ARIPIPRAZOLE
     Route: 048
     Dates: start: 20130309
  14. RISPERDAL CONSTA [Suspect]
     Active Substance: RISPERIDONE
     Indication: SCHIZOPHRENIA
     Route: 030
     Dates: start: 20110506, end: 20110506
  15. NORVASC [Concomitant]
     Active Substance: AMLODIPINE BESYLATE
     Route: 048
     Dates: start: 20130309
  16. GASTER [Concomitant]
     Active Substance: FAMOTIDINE
     Route: 048
     Dates: start: 20130309

REACTIONS (2)
  - Sternal fracture [Recovered/Resolved]
  - Spinal compression fracture [Recovered/Resolved]

NARRATIVE: CASE EVENT DATE: 2013
